FAERS Safety Report 15900854 (Version 1)
Quarter: 2019Q1

REPORT INFORMATION
  Report Type: Spontaneous
  Country: US (occurrence: US)
  Receive Date: 20190131
  Receipt Date: 20190131
  Transmission Date: 20190417
  Serious: Yes (Hospitalization, Disabling, Other)
  Sender: FDA-Public Use
  Company Number: None

PATIENT
  Age: 21 Year
  Sex: Female
  Weight: 110.22 kg

DRUGS (1)
  1. NEXPLANON [Suspect]
     Active Substance: ETONOGESTREL
     Indication: CONTRACEPTION
     Dosage: ?          QUANTITY:1 IMPLANT; STAYS IMPLANTED ARM IMPLANT?
     Dates: start: 20160701, end: 20181120

REACTIONS (8)
  - Nausea [None]
  - Defaecation urgency [None]
  - Abdominal pain upper [None]
  - Mood swings [None]
  - Diarrhoea [None]
  - Hyperthyroidism [None]
  - Fatigue [None]
  - Pain [None]

NARRATIVE: CASE EVENT DATE: 20160710
